FAERS Safety Report 8341864-9 (Version None)
Quarter: 2012Q2

REPORT INFORMATION
  Report Type: 
  Country: None (occurrence: None)
  Receive Date: 20120503
  Receipt Date: 20120419
  Transmission Date: 20120825
  Serious: Yes (Other)
  Sender: FDA-Public Use
  Company Number: JPI-P-020864

PATIENT
  Age: 48 Year
  Sex: Female

DRUGS (2)
  1. XYREM [Suspect]
     Indication: CATAPLEXY
     Dosage: 3 GM (1.5 GM, 2 IN 1 D), ORAL, (UNKNOWN), ORAL, 6 GM (3 GM, 2 IN 1 D), ORAL
     Route: 048
     Dates: start: 20070711
  2. XYREM [Suspect]
     Indication: CATAPLEXY
     Dosage: 3 GM (1.5 GM, 2 IN 1 D), ORAL, (UNKNOWN), ORAL, 6 GM (3 GM, 2 IN 1 D), ORAL
     Route: 048
     Dates: start: 20030724

REACTIONS (3)
  - PAIN [None]
  - HYSTERECTOMY [None]
  - UTERINE LEIOMYOMA [None]
